FAERS Safety Report 7224288-7 (Version None)
Quarter: 2011Q1

REPORT INFORMATION
  Report Type: 
  Country: None (occurrence: None)
  Receive Date: 20110106
  Receipt Date: 20110106
  Transmission Date: 20110831
  Serious: Yes (Hospitalization)
  Sender: FDA-Public Use
  Company Number: None

PATIENT
  Age: 92 Year
  Sex: Female
  Weight: 54 kg

DRUGS (10)
  1. COUMADIN [Suspect]
     Indication: ATRIAL FIBRILLATION
     Dosage: 2 MG DAILY PO
     Route: 048
  2. SERTRALINE [Concomitant]
  3. VERAPAMIL [Concomitant]
  4. REMERON [Concomitant]
  5. TYLENOL-500 [Concomitant]
  6. FUROSEMIDE [Concomitant]
  7. ZOLPIDEM [Concomitant]
  8. LANOXIN [Concomitant]
  9. TRAMODOL [Concomitant]
  10. CRESTOR [Concomitant]

REACTIONS (3)
  - CONTUSION [None]
  - FALL [None]
  - INTERNATIONAL NORMALISED RATIO INCREASED [None]
